FAERS Safety Report 14937174 (Version 1)
Quarter: 2018Q2

REPORT INFORMATION
  Report Type: Report from Study
  Country: IT (occurrence: IT)
  Receive Date: 20180525
  Receipt Date: 20180525
  Transmission Date: 20180711
  Serious: Yes (Other)
  Sender: FDA-Public Use
  Company Number: IT-ROCHE-2129337

PATIENT

DRUGS (3)
  1. CARBOPLATIN. [Suspect]
     Active Substance: CARBOPLATIN
     Indication: OVARIAN EPITHELIAL CANCER RECURRENT
     Dosage: DATE OF MOST RECENT DOSE OF CARBOPLATIN PRIOR TO AE WAS 11/OCT/2016
     Route: 065
     Dates: start: 20161011
  2. BEVACIZUMAB. [Suspect]
     Active Substance: BEVACIZUMAB
     Indication: OVARIAN EPITHELIAL CANCER RECURRENT
     Dosage: DATE OF MOST RECENT DOSE OF BEVACZIUMAB PRIOR TO AE WAS 11/OCT/2016
     Route: 065
     Dates: start: 20161011
  3. PEGYLATED LIPOSOMAL DOXORUBICIN [Suspect]
     Active Substance: DOXORUBICIN
     Indication: OVARIAN EPITHELIAL CANCER RECURRENT
     Dosage: DATE OF MOST RECENT DOSE OF PEGYLATED LIPOSOMAL DOXORUBICIN PRIOR TO AE WAS 11/OCT/2016
     Route: 065
     Dates: start: 20161011

REACTIONS (1)
  - Intestinal obstruction [Recovered/Resolved]

NARRATIVE: CASE EVENT DATE: 20161018
